FAERS Safety Report 7815870-4 (Version None)
Quarter: 2011Q4

REPORT INFORMATION
  Report Type: 
  Country: None (occurrence: None)
  Receive Date: 20111014
  Receipt Date: 20111011
  Transmission Date: 20120403
  Serious: Yes (Other)
  Sender: FDA-Public Use
  Company Number: US-SANOFI-AVENTIS-2011SA066691

PATIENT
  Age: 65 Year
  Sex: Female

DRUGS (3)
  1. NOVOLOG [Concomitant]
  2. ALL OTHER THERAPEUTIC PRODUCTS [Concomitant]
  3. LANTUS [Suspect]
     Indication: TYPE 2 DIABETES MELLITUS
     Dosage: DOSE:60 UNIT(S)
     Route: 058
     Dates: start: 20000101

REACTIONS (4)
  - CEREBROVASCULAR ACCIDENT [None]
  - HEMIPARESIS [None]
  - BALANCE DISORDER [None]
  - DIABETIC RETINOPATHY [None]
